FAERS Safety Report 14214668 (Version 1)
Quarter: 2017Q4

REPORT INFORMATION
  Report Type: Spontaneous
  Country: ZA (occurrence: ZA)
  Receive Date: 20171122
  Receipt Date: 20171122
  Transmission Date: 20180321
  Serious: Yes (Death)
  Sender: FDA-Public Use
  Company Number: ZA-NOVOPROD-573157

PATIENT
  Age: 73 Year
  Sex: Female

DRUGS (1)
  1. ESTROFEM [Suspect]
     Active Substance: ESTRADIOL CYPIONATE
     Indication: HORMONE REPLACEMENT THERAPY
     Dosage: 1.00 MG
     Route: 048
     Dates: end: 20171019

REACTIONS (1)
  - Death [Fatal]

NARRATIVE: CASE EVENT DATE: 20171019
